FAERS Safety Report 15458357 (Version 1)
Quarter: 2018Q4

REPORT INFORMATION
  Report Type: Spontaneous
  Country: US (occurrence: US)
  Receive Date: 20181002
  Receipt Date: 20181002
  Transmission Date: 20190204
  Serious: Yes (Disabling)
  Sender: FDA-Public Use
  Company Number: None

PATIENT
  Age: 31 Year
  Sex: Female
  Weight: 60.75 kg

DRUGS (3)
  1. PRENATAL VITAMINS [Concomitant]
     Active Substance: VITAMINS
  2. VARIZIG [Suspect]
     Active Substance: HUMAN VARICELLA-ZOSTER IMMUNE GLOBULIN
     Indication: VARICELLA
     Dosage: ?          QUANTITY:3 INJECTION(S);OTHER FREQUENCY:1 DOSE;?
     Route: 030
     Dates: start: 20170919, end: 20170919
  3. VARIZIG [Suspect]
     Active Substance: HUMAN VARICELLA-ZOSTER IMMUNE GLOBULIN
     Indication: PROPHYLAXIS
     Dosage: ?          QUANTITY:3 INJECTION(S);OTHER FREQUENCY:1 DOSE;?
     Route: 030
     Dates: start: 20170919, end: 20170919

REACTIONS (3)
  - Maternal drugs affecting foetus [None]
  - Neonatal deafness [None]
  - Exposure during pregnancy [None]

NARRATIVE: CASE EVENT DATE: 20180301
